FAERS Safety Report 4360655-7 (Version None)
Quarter: 2004Q2

REPORT INFORMATION
  Report Type: 
  Country: None (occurrence: None)
  Receive Date: 20040514
  Receipt Date: 20040505
  Transmission Date: 20050107
  Serious: Yes (Other)
  Sender: FDA-Public Use
  Company Number: GB-JNJFOC-20040500639

PATIENT
  Sex: Female

DRUGS (3)
  1. REMICADE (INFLIXIMAB, RECOMBINANT) [Suspect]
     Indication: RHEUMATOID ARTHRITIS
     Dosage: INTRAVENOUS
     Route: 042
  2. STEROIDS (CORTICOSTEROID NOS) [Concomitant]
  3. METHOTREXATE [Concomitant]

REACTIONS (2)
  - PARANOIA [None]
  - PSYCHOTIC DISORDER [None]
